FAERS Safety Report 25024184 (Version 2)
Quarter: 2025Q1

REPORT INFORMATION
  Report Type: Report from Study
  Country: US (occurrence: US)
  Receive Date: 20250228
  Receipt Date: 20250331
  Transmission Date: 20250408
  Serious: No
  Sender: ABBVIE
  Company Number: US-ABBVIE-6151966

PATIENT
  Age: 74 Year
  Sex: Female
  Weight: 60.327 kg

DRUGS (13)
  1. RINVOQ [Suspect]
     Active Substance: UPADACITINIB
     Indication: Dermatitis atopic
     Dosage: FORM STRENGTH 15 MILLIGRAM
     Route: 048
     Dates: start: 20241218, end: 20250317
  2. RINVOQ [Suspect]
     Active Substance: UPADACITINIB
     Indication: Dermatitis atopic
     Dosage: FORM STRENGTH 15 MILLIGRAM
     Route: 048
     Dates: start: 20250318
  3. VITAMINS [Concomitant]
     Active Substance: VITAMINS
     Indication: Product used for unknown indication
  4. GABAPENTIN [Concomitant]
     Active Substance: GABAPENTIN
     Indication: Nervous system disorder
     Dosage: 100 MILLIGRAM
  5. TRAMADOL [Concomitant]
     Active Substance: TRAMADOL
     Indication: Back disorder
  6. OMEPRAZOLE [Concomitant]
     Active Substance: OMEPRAZOLE
     Indication: Gastrooesophageal reflux disease
     Dosage: 40 MILLIGRAM
  7. ALLOPURINOL [Concomitant]
     Active Substance: ALLOPURINOL
     Indication: Gout
  8. NABUMETONE [Concomitant]
     Active Substance: NABUMETONE
     Indication: Arthritis
     Dosage: 750 MILLIGRAM
  9. ATENOLOL [Concomitant]
     Active Substance: ATENOLOL
     Indication: Blood pressure measurement
     Dosage: 25 MILLIGRAM
  10. LISINOPRIL [Concomitant]
     Active Substance: LISINOPRIL
     Indication: Blood pressure measurement
     Dosage: 10 MILLIGRAM
  11. ATORVASTATIN [Concomitant]
     Active Substance: ATORVASTATIN
     Indication: Blood cholesterol
  12. TRIAMCINOLONE [Concomitant]
     Active Substance: TRIAMCINOLONE
     Indication: Product used for unknown indication
  13. LEVOTHYROXINE [Concomitant]
     Active Substance: LEVOTHYROXINE
     Indication: Thyroid disorder

REACTIONS (7)
  - Rash pruritic [Recovering/Resolving]
  - Viral infection [Recovering/Resolving]
  - Rash macular [Recovering/Resolving]
  - Weight decreased [Recovered/Resolved]
  - Cough [Recovering/Resolving]
  - Hypophagia [Recovering/Resolving]
  - Rhinorrhoea [Recovering/Resolving]

NARRATIVE: CASE EVENT DATE: 20250301
